FAERS Safety Report 4683456-9 (Version None)
Quarter: 2005Q2

REPORT INFORMATION
  Report Type: 
  Country: None (occurrence: None)
  Receive Date: 20050602
  Receipt Date: 20050413
  Transmission Date: 20051028
  Serious: No
  Sender: FDA-Public Use
  Company Number: 200510752BWH

PATIENT
  Sex: Male

DRUGS (4)
  1. LEVITRA [Suspect]
     Dosage: 10 MG, PRN, ORAL
     Route: 048
     Dates: start: 20040101
  2. ZOLOFT [Concomitant]
  3. VITAMINS [Concomitant]
  4. VIAGRA [Concomitant]

REACTIONS (1)
  - DYSPEPSIA [None]
